FAERS Safety Report 5188334-7 (Version None)
Quarter: 2006Q4

REPORT INFORMATION
  Report Type: 
  Country: None (occurrence: None)
  Receive Date: 20061221
  Receipt Date: 20061220
  Transmission Date: 20070319
  Serious: Yes (Other)
  Sender: FDA-Public Use
  Company Number: US-GLAXOSMITHKLINE-A0632285A

PATIENT
  Age: 70 Year
  Sex: Female

DRUGS (7)
  1. CITRUCEL SUGAR-FREE SUSPENSION ORANGE [Suspect]
     Indication: GASTROINTESTINAL DISORDER
     Route: 048
  2. CITRUCEL [Suspect]
     Indication: GASTROINTESTINAL DISORDER
     Route: 048
  3. CITRUCEL REGULAR SUSPENSION [Suspect]
     Indication: GASTROINTESTINAL DISORDER
     Route: 048
  4. ATENOLOL [Concomitant]
  5. CALCIUM [Concomitant]
  6. GLUCOSAMINE [Concomitant]
  7. LEVOXYL [Concomitant]

REACTIONS (8)
  - ABDOMINAL DISTENSION [None]
  - DRUG INEFFECTIVE [None]
  - FIBROMYALGIA [None]
  - OSTEOPOROSIS [None]
  - PAIN [None]
  - PHARMACEUTICAL PRODUCT COMPLAINT [None]
  - RHEUMATOID ARTHRITIS [None]
  - WEIGHT INCREASED [None]
